FAERS Safety Report 12851163 (Version 2)
Quarter: 2016Q4

REPORT INFORMATION
  Report Type: Spontaneous
  Country: TW (occurrence: TW)
  Receive Date: 20161015
  Receipt Date: 20161104
  Transmission Date: 20170207
  Serious: Yes (Hospitalization)
  Sender: FDA-Public Use
  Company Number: TW-AMGEN-TWNSP2016140736

PATIENT
  Age: 61 Year
  Sex: Female

DRUGS (10)
  1. ENBREL [Suspect]
     Active Substance: ETANERCEPT
     Indication: RHEUMATOID ARTHRITIS
     Dosage: 25 MG, 2X/WEEK
     Route: 058
     Dates: start: 20081007, end: 20161006
  2. RANITIDINE. [Concomitant]
     Active Substance: RANITIDINE
     Dosage: 2 DF, 2X/DAY
  3. XANAX [Concomitant]
     Active Substance: ALPRAZOLAM
     Dosage: 1 DF, 2X/DAY
  4. SENNA [Concomitant]
     Active Substance: SENNA LEAF\SENNOSIDES\SENNOSIDES A AND B
     Dosage: 2 DF, 1X/DAY
  5. PREDNISOLONE. [Concomitant]
     Active Substance: PREDNISOLONE
     Dosage: 1 DF, 1X/DAY
  6. STILNOX [Concomitant]
     Active Substance: ZOLPIDEM TARTRATE
     Dosage: 1 DF, 1X/DAY
  7. DIPHENHYDRAMINE. [Concomitant]
     Active Substance: DIPHENHYDRAMINE
     Dosage: 1 DF, 3X/DAY
  8. DIPHENHYDRAMINE. [Concomitant]
     Active Substance: DIPHENHYDRAMINE
     Dosage: 1 DF, 3X/DAY
  9. RANITIDINE. [Concomitant]
     Active Substance: RANITIDINE
     Dosage: 2 DF, 2X/DAY
  10. ARCOXIA [Concomitant]
     Active Substance: ETORICOXIB
     Dosage: 1 DF, ALTERNATE DAY

REACTIONS (1)
  - Hepatic neoplasm [Not Recovered/Not Resolved]

NARRATIVE: CASE EVENT DATE: 201609
